FAERS Safety Report 23134447 (Version 5)
Quarter: 2024Q4

REPORT INFORMATION
  Report Type: Spontaneous
  Country: IN (occurrence: IN)
  Receive Date: 20231101
  Receipt Date: 20241031
  Transmission Date: 20250114
  Serious: Yes (Other)
  Sender: PFIZER
  Company Number: IN-PFIZER INC-PV202300082009

PATIENT
  Age: 28 Year
  Sex: Male
  Weight: 79.3 kg

DRUGS (1)
  1. LORLATINIB [Suspect]
     Active Substance: LORLATINIB
     Dosage: 100 MG, 1X/DAY
     Route: 048
     Dates: start: 20230414

REACTIONS (10)
  - Electrocardiogram QT prolonged [Unknown]
  - Rash [Recovering/Resolving]
  - Blood cholesterol increased [Unknown]
  - Pleural effusion [Unknown]
  - Weight increased [Unknown]
  - Blood pressure increased [Unknown]
  - Blood triglycerides increased [Unknown]
  - Dyslipidaemia [Unknown]
  - Heart rate increased [Unknown]
  - Low density lipoprotein increased [Not Recovered/Not Resolved]

NARRATIVE: CASE EVENT DATE: 20230505
